FAERS Safety Report 9500063 (Version 1)
Quarter: 2013Q1

REPORT INFORMATION
  Report Type: Spontaneous
  Country: US (occurrence: None)
  Receive Date: 20130107
  Receipt Date: 20130107
  Transmission Date: 20140127
  Serious: No
  Sender: FDA-Public Use
  Company Number: PHEH2012US021899

PATIENT
  Age: 47 Year
  Sex: Female

DRUGS (6)
  1. GILENYA (FINGOLIMOD) CAPSULE, 0.5MG [Suspect]
     Dosage: 0.5MG. EVERYDAY, ORAL
     Route: 048
  2. DIOVAN (VALSARTAN) [Concomitant]
  3. MULTIVITAMINS (ASCORBIC ACID, ERGOCALCIFEROL, FOLIC ACID, NICOTINAMIDE, PANTHENOL, RETINOL, RIBOFLAVIN, THIAMINE HYDROCHLORIDE) [Concomitant]
  4. ASPIRIN (ACETYLSALICYLIC ACID) [Concomitant]
  5. CALCIUM + VIT D (CALCIUM CARBONATE, VITAMIN D NOS) [Concomitant]
  6. FAMPRIDINE (FAMPRIDINE) [Concomitant]

REACTIONS (1)
  - Throat irritation [None]
